FAERS Safety Report 9144476 (Version 2)
Quarter: 2013Q2

REPORT INFORMATION
  Report Type: Spontaneous
  Country: SE (occurrence: SE)
  Receive Date: 20130306
  Receipt Date: 20130627
  Transmission Date: 20140414
  Serious: Yes (Life-Threatening, Hospitalization)
  Sender: FDA-Public Use
  Company Number: PHHY2013SE021817

PATIENT
  Age: 55 Year
  Sex: Female

DRUGS (3)
  1. LOSARTAN [Suspect]
     Indication: HYPERTENSION
     Dosage: 50 MG, ONCE/SINGLE
     Route: 048
  2. PREDNISOLONE [Concomitant]
     Indication: NEURODERMATITIS
     Dosage: 5 MG, DAILY
     Route: 048
  3. TAVEGYL [Concomitant]
     Indication: NEURODERMATITIS
     Dosage: 1 MG, TID

REACTIONS (10)
  - Kounis syndrome [Unknown]
  - Arteriospasm coronary [Unknown]
  - Chest pain [Recovered/Resolved]
  - Electrocardiogram ST segment elevation [Recovered/Resolved]
  - Ejection fraction decreased [Recovering/Resolving]
  - Coronary artery stenosis [Unknown]
  - Myocardial infarction [Unknown]
  - Cardiac failure [Unknown]
  - Blood pressure systolic abnormal [Unknown]
  - Haemodynamic instability [Unknown]
